FAERS Safety Report 9082512 (Version 2)
Quarter: 2014Q1

REPORT INFORMATION
  Report Type: Spontaneous
  Country: TR (occurrence: TR)
  Receive Date: 20130131
  Receipt Date: 20140211
  Transmission Date: 20141002
  Serious: Yes (Hospitalization, Other)
  Sender: FDA-Public Use
  Company Number: TR-AMGEN-TURSP2013005902

PATIENT
  Age: 38 Year
  Sex: Female
  Weight: 60 kg

DRUGS (2)
  1. ENBREL [Suspect]
     Indication: ANKYLOSING SPONDYLITIS
     Dosage: 25 MG, 2 TIMES/WK
     Route: 065
     Dates: start: 200910, end: 201110
  2. ENBREL [Suspect]
     Dosage: 50 MG, WEEKLY
     Route: 058
     Dates: start: 20111028, end: 201301

REACTIONS (14)
  - Incontinence [Recovered/Resolved]
  - Vertigo [Not Recovered/Not Resolved]
  - Somnolence [Not Recovered/Not Resolved]
  - Dyspnoea [Not Recovered/Not Resolved]
  - Back pain [Not Recovered/Not Resolved]
  - Muscle strain [Not Recovered/Not Resolved]
  - Burning sensation [Not Recovered/Not Resolved]
  - Swelling [Not Recovered/Not Resolved]
  - Arrhythmia [Not Recovered/Not Resolved]
  - Tuberculin test positive [Not Recovered/Not Resolved]
  - Injection site hypersensitivity [Not Recovered/Not Resolved]
  - Injection site warmth [Not Recovered/Not Resolved]
  - Injection site swelling [Not Recovered/Not Resolved]
  - Injection site pruritus [Not Recovered/Not Resolved]
